FAERS Safety Report 9698810 (Version 2)
Quarter: 2013Q4

REPORT INFORMATION
  Report Type: Spontaneous
  Country: US (occurrence: US)
  Receive Date: 20131120
  Receipt Date: 20131209
  Transmission Date: 20140711
  Serious: No
  Sender: FDA-Public Use
  Company Number: US-PFIZER INC-2013331346

PATIENT
  Sex: Female

DRUGS (4)
  1. LYRICA [Suspect]
     Dosage: UNK, 1X/DAY
     Route: 048
  2. LYRICA [Suspect]
     Dosage: TWO UNKNOWN DOSES TOGETHER, 3X/DAY
     Route: 048
  3. LYRICA [Suspect]
     Dosage: UNK, 1X/DAY
     Route: 048
  4. PREMARIN VAGINAL CREAM [Concomitant]
     Dosage: UNK
     Route: 067
     Dates: end: 2013

REACTIONS (7)
  - Pain in extremity [Unknown]
  - Pain [Unknown]
  - Insomnia [Unknown]
  - Middle insomnia [Unknown]
  - Drug ineffective [Unknown]
  - Feeling abnormal [Not Recovered/Not Resolved]
  - Intentional drug misuse [Unknown]
